FAERS Safety Report 13447856 (Version 2)
Quarter: 2019Q4

REPORT INFORMATION
  Report Type: Spontaneous
  Country: NL (occurrence: NL)
  Receive Date: 20170417
  Receipt Date: 20191203
  Transmission Date: 20200122
  Serious: Yes (Other)
  Sender: FDA-Public Use
  Company Number: NL-TEVA-759819ACC

PATIENT
  Age: 71 Year
  Sex: Female

DRUGS (21)
  1. CYCLOFOSFAMIDE INJECTIE/INFUUS [Suspect]
     Active Substance: CYCLOPHOSPHAMIDE
     Indication: NON-HODGKIN^S LYMPHOMA
     Dosage: 1300MG PER TWO WEEKS
     Route: 042
     Dates: start: 2017
  2. CETIRIZINE TABLET 10MG [Concomitant]
     Dosage: 10 MILLIGRAM DAILY; 1 TIME DAILY 1 TABLET
     Route: 048
  3. FOLIUMZUUR TABLET 5MG [Concomitant]
     Active Substance: FOLIC ACID
     Dosage: 1 TIME PER WEEK 2 TABLETS
     Route: 048
  4. PARACETAMOL TABLET  500MG [Concomitant]
     Active Substance: ACETAMINOPHEN
     Dosage: AS REQUIRED 2 TABLETS, MAXIMUM 4 TIMES PER DAY
     Route: 048
  5. ACETYLSALICYLZUUR TABLET 80MG [Concomitant]
     Dosage: 80 MILLIGRAM DAILY; 1 TIME DAILY 1 TABLET
     Route: 048
  6. DOXORUBICINE INFUUS (LIPOSOMAAL) [Suspect]
     Active Substance: DOXORUBICIN
     Indication: NON-HODGKIN^S LYMPHOMA
     Dosage: 45MG PER TWO WEEKS
     Route: 042
     Dates: start: 2017
  7. MOVICOLON POEDER VOOR DRANK IN SACHET [Concomitant]
     Dosage: AS REQUIRED 1 TIME PER DAY 1 SACHET
     Route: 048
  8. RITUXIMAB INFUUS [Concomitant]
     Dosage: 700MG PER TWO WEEKS
     Route: 042
  9. ALGELDRAAT/MAGNESIUMHYDROXIDE SUS ORAAL 40/20MG/ML [Concomitant]
     Dosage: AS REQUIRED 15ML
     Route: 048
  10. SIMVASTATINE TABLET 40MG [Concomitant]
     Active Substance: SIMVASTATIN
     Dosage: 40 MILLIGRAM DAILY; 1 TIME DAILY 1 TABLET
     Route: 048
  11. NEULASTA INJVLST 10MG/ML WWSP 0,6ML [Concomitant]
     Dosage: ONE TIME PER TWO WEEKS
     Route: 058
  12. NIFEDIPINE TABLET MGA 30MG [Concomitant]
     Active Substance: NIFEDIPINE
     Dosage: 30 MILLIGRAM DAILY; 1 TIME DAILY 1 TABLET
     Route: 048
  13. METOPROLOL TABLET 50MG [Concomitant]
     Dosage: 100 MILLIGRAM DAILY; 2 TIMES DAILY 1 TABLET
     Route: 048
  14. HYPROMELLOSE OOGDRUPPELS  3MG/ML [Concomitant]
     Dosage: 4 GTT DAILY; 4 TIMES DAILY 1 DROP BOTH EYES
     Route: 047
  15. VINCRISTINE PDR V INJVLST 1MG [Suspect]
     Active Substance: VINCRISTINE
     Indication: NON-HODGKIN^S LYMPHOMA
     Dosage: 2MG PER TWO WEEKS
     Route: 042
     Dates: start: 2017, end: 20170203
  16. PREDNISOLON [Concomitant]
     Active Substance: PREDNISOLONE
     Dosage: ORAL 100MG FIVE TIMES PER TWO WEEKS
     Route: 048
  17. VALACYCLOVIR [Concomitant]
     Active Substance: VALACYCLOVIR HYDROCHLORIDE
     Dosage: 3000 MILLIGRAM DAILY; 3 TIMES DAILY 2 TABLETS
     Route: 048
  18. OMECAT CAPSULE MSR 40MG [Concomitant]
     Active Substance: OMEPRAZOLE
     Dosage: 40 MILLIGRAM DAILY; 1 TIME DAILY 1 TABLET
     Route: 048
  19. OXYCODON TABLET 5MG [Concomitant]
     Dosage: AS REQUIRED 1 TABLET, MAXIMUM 4 TIMES PER DAY
     Route: 048
  20. FUROSEMIDE TABLET 40MG [Concomitant]
     Active Substance: FUROSEMIDE
     Dosage: 40 MILLIGRAM DAILY; 1 TIME DAILY 1 TABLET
     Route: 048
  21. RAMIPRIL TABLET  2,5MG [Concomitant]
     Dosage: 2.5 MILLIGRAM DAILY; 1 TIME DAILY 1 TABLET
     Route: 048

REACTIONS (1)
  - Extremity necrosis [Not Recovered/Not Resolved]

NARRATIVE: CASE EVENT DATE: 20170203
